FAERS Safety Report 6318825-4 (Version None)
Quarter: 2009Q3

REPORT INFORMATION
  Report Type: 
  Country: None (occurrence: None)
  Receive Date: 20090821
  Receipt Date: 20090814
  Transmission Date: 20100115
  Serious: Yes (Other)
  Sender: FDA-Public Use
  Company Number: US-AMGEN-QUU360658

PATIENT
  Sex: Female
  Weight: 2.7 kg

DRUGS (5)
  1. ENBREL [Suspect]
     Indication: JUVENILE ARTHRITIS
     Route: 065
     Dates: start: 19980901, end: 20070401
  2. UNSPECIFIED MEDICATION [Suspect]
     Route: 064
  3. PREDNISONE [Concomitant]
     Route: 064
  4. CLOMID [Concomitant]
     Route: 064
  5. METFORMIN HCL [Concomitant]
     Route: 064

REACTIONS (1)
  - JAUNDICE NEONATAL [None]
